FAERS Safety Report 25264686 (Version 1)
Quarter: 2025Q2

REPORT INFORMATION
  Report Type: Spontaneous
  Country: US (occurrence: US)
  Receive Date: 20250502
  Receipt Date: 20250502
  Transmission Date: 20250717
  Serious: No
  Sender: PFIZER
  Company Number: US-PFIZER INC-PV202500051782

PATIENT
  Sex: Male

DRUGS (15)
  1. SKELAXIN [Suspect]
     Active Substance: METAXALONE
  2. CODEINE [Concomitant]
     Active Substance: CODEINE
  3. VALIUM [Concomitant]
     Active Substance: DIAZEPAM
  4. WELLBUTRIN [Concomitant]
     Active Substance: BUPROPION HYDROCHLORIDE
  5. EFFEXOR [Concomitant]
     Active Substance: VENLAFAXINE HYDROCHLORIDE
  6. CELEBREX [Concomitant]
     Active Substance: CELECOXIB
  7. PARAFON FORTE [Concomitant]
     Active Substance: CHLORZOXAZONE
  8. NAPROXEN [Concomitant]
     Active Substance: NAPROXEN
  9. ANAPROX [NAPROXEN SODIUM] [Concomitant]
  10. PROZAC [Concomitant]
     Active Substance: FLUOXETINE HYDROCHLORIDE
  11. MIRTAZAPINE [Concomitant]
     Active Substance: MIRTAZAPINE
  12. SEROQUEL [Concomitant]
     Active Substance: QUETIAPINE FUMARATE
  13. SONATA [Concomitant]
     Active Substance: ZALEPLON
  14. ZOLOFT [Concomitant]
     Active Substance: SERTRALINE HYDROCHLORIDE
  15. NORFLEX [Concomitant]
     Active Substance: ORPHENADRINE CITRATE

REACTIONS (1)
  - Drug hypersensitivity [Unknown]
